FAERS Safety Report 12814072 (Version 2)
Quarter: 2017Q4

REPORT INFORMATION
  Report Type: Spontaneous
  Country: US (occurrence: US)
  Receive Date: 20161005
  Receipt Date: 20171018
  Transmission Date: 20180320
  Serious: No
  Sender: FDA-Public Use
  Company Number: US-AMGEN-USASP2016040504

PATIENT
  Age: 68 Year
  Sex: Female

DRUGS (2)
  1. DOLOBID [Concomitant]
     Active Substance: DIFLUNISAL
     Indication: BACK PAIN
  2. PROLIA [Suspect]
     Active Substance: DENOSUMAB
     Indication: OSTEOPOROSIS POSTMENOPAUSAL
     Dosage: UNK
     Route: 065

REACTIONS (3)
  - Speech disorder [Not Recovered/Not Resolved]
  - Dysphagia [Unknown]
  - Dysarthria [Unknown]
